FAERS Safety Report 14536508 (Version 1)
Quarter: 2018Q1

REPORT INFORMATION
  Report Type: Spontaneous
  Country: US (occurrence: US)
  Receive Date: 20180215
  Receipt Date: 20180215
  Transmission Date: 20180509
  Serious: Yes (Hospitalization)
  Sender: FDA-Public Use
  Company Number: None

PATIENT
  Age: 97 Year
  Sex: Male
  Weight: 87.4 kg

DRUGS (11)
  1. ASA [Concomitant]
     Active Substance: ASPIRIN
  2. VITAMIN D [Concomitant]
     Active Substance: CHOLECALCIFEROL
  3. CHRONULAC [Concomitant]
     Active Substance: LACTULOSE
  4. COLACE [Concomitant]
     Active Substance: DOCUSATE SODIUM
  5. ZOCOR [Concomitant]
     Active Substance: SIMVASTATIN
  6. NORCO [Suspect]
     Active Substance: ACETAMINOPHEN\HYDROCODONE BITARTRATE
     Indication: NEUROPATHY PERIPHERAL
     Dosage: DATES OF USE - RECENT?DOSE - 5-325 DF X 2 TABLETS?FREQUENCY - A4HRS PRN
     Route: 048
  7. ADVIL [Concomitant]
     Active Substance: IBUPROFEN
  8. SYNTHROID [Concomitant]
     Active Substance: LEVOTHYROXINE SODIUM
  9. ALLOPURINOL. [Concomitant]
     Active Substance: ALLOPURINOL
  10. LASIX [Concomitant]
     Active Substance: FUROSEMIDE
  11. PRILOSEC [Concomitant]
     Active Substance: OMEPRAZOLE MAGNESIUM

REACTIONS (4)
  - Respiratory rate decreased [None]
  - Apnoea [None]
  - Cardio-respiratory arrest [None]
  - Bradycardia [None]

NARRATIVE: CASE EVENT DATE: 20150727
